FAERS Safety Report 24149713 (Version 1)
Quarter: 2024Q3

REPORT INFORMATION
  Report Type: Report from Study
  Country: GT (occurrence: GT)
  Receive Date: 20240730
  Receipt Date: 20240730
  Transmission Date: 20241017
  Serious: Yes (Other)
  Sender: BIOGEN
  Company Number: GT-BIOGEN-2024BI01275466

PATIENT
  Age: 26 Year
  Sex: Female
  Weight: 83 kg

DRUGS (3)
  1. TYSABRI [Suspect]
     Active Substance: NATALIZUMAB
     Indication: Relapsing multiple sclerosis
     Route: 050
     Dates: start: 202106
  2. FOLIC ACID [Concomitant]
     Active Substance: FOLIC ACID
     Indication: Prenatal care
     Dates: start: 202401
  3. VITAMIN D [Concomitant]
     Active Substance: VITAMIN D NOS
     Indication: Prenatal care
     Route: 050
     Dates: start: 202401

REACTIONS (6)
  - High risk pregnancy [Not Recovered/Not Resolved]
  - Pain in extremity [Not Recovered/Not Resolved]
  - Spinal pain [Not Recovered/Not Resolved]
  - Thrombosis [Not Recovered/Not Resolved]
  - Maternal exposure during pregnancy [Not Recovered/Not Resolved]
  - Arthralgia [Not Recovered/Not Resolved]

NARRATIVE: CASE EVENT DATE: 20231201
